FAERS Safety Report 9236854 (Version 2)
Quarter: 2013Q2

REPORT INFORMATION
  Report Type: Spontaneous
  Country: ME (occurrence: ME)
  Receive Date: 20130417
  Receipt Date: 20130425
  Transmission Date: 20140414
  Serious: Yes (Hospitalization)
  Sender: FDA-Public Use
  Company Number: ME-ROCHE-1215016

PATIENT
  Age: 51 Year
  Sex: Male
  Weight: 120 kg

DRUGS (7)
  1. ACTEMRA [Suspect]
     Indication: RHEUMATOID ARTHRITIS
     Route: 042
     Dates: start: 20120517, end: 20130205
  2. PRILENAP [Concomitant]
     Indication: HYPERTENSION
     Route: 048
     Dates: start: 2007
  3. METHOTREXATE [Concomitant]
     Indication: RHEUMATOID ARTHRITIS
     Route: 048
     Dates: start: 201009
  4. FOLAN [Concomitant]
     Indication: RHEUMATOID ARTHRITIS
     Route: 048
     Dates: start: 201009
  5. DICLOFENAC [Concomitant]
     Indication: RHEUMATOID ARTHRITIS
     Route: 048
     Dates: start: 2010
  6. RANISAN [Concomitant]
     Route: 048
     Dates: start: 2007
  7. CONCOR [Concomitant]
     Indication: HYPERTENSION
     Route: 048
     Dates: start: 2007

REACTIONS (2)
  - Infectious pleural effusion [Recovering/Resolving]
  - Sepsis [Recovering/Resolving]
